FAERS Safety Report 4294138-X (Version None)
Quarter: 2004Q1

REPORT INFORMATION
  Report Type: 
  Country: None (occurrence: None)
  Receive Date: 20040211
  Receipt Date: 20040130
  Transmission Date: 20041129
  Serious: Yes (Death)
  Sender: FDA-Public Use
  Company Number: GB-JNJFOC-20040200024

PATIENT
  Age: 50 Year
  Sex: Female

DRUGS (9)
  1. REMICADE [Suspect]
     Indication: RHEUMATOID ARTHRITIS
     Dosage: 200 MG, INTRAVENOUS
     Route: 042
     Dates: start: 20020606, end: 20021201
  2. METHOTREXATE [Concomitant]
  3. LODINE [Concomitant]
  4. SOLPADOL (PANADEINE CO) [Concomitant]
  5. LANSOPRAZOLE [Concomitant]
  6. FERROGRAD (FERROUS SULFATE EXSICCATED) [Concomitant]
  7. SALBUTAMOL (SALBUTAMOL) [Concomitant]
  8. CIPRAMIL (CITALOPRAM HYDROBROMIDE) [Concomitant]
  9. LEFLUNOMIDE (LEFLUNOMIDE) [Concomitant]

REACTIONS (2)
  - NEUTROPENIA [None]
  - OVARIAN EPITHELIAL CANCER [None]
